FAERS Safety Report 4460582-0 (Version None)
Quarter: 2004Q3

REPORT INFORMATION
  Report Type: 
  Country: None (occurrence: None)
  Receive Date: 20040923
  Receipt Date: 20040909
  Transmission Date: 20050211
  Serious: Yes (Hospitalization)
  Sender: FDA-Public Use
  Company Number: 2004-BP-06658BP

PATIENT

DRUGS (2)
  1. COMBIVENT [Suspect]
     Dosage: SEE TEXT, 18/103MG/PUFF) IH
     Route: 055
  2. DUONEB [Concomitant]

REACTIONS (1)
  - CHRONIC OBSTRUCTIVE AIRWAYS DISEASE EXACERBATED [None]
